FAERS Safety Report 8214270-5 (Version None)
Quarter: 2012Q1

REPORT INFORMATION
  Report Type: 
  Country: None (occurrence: None)
  Receive Date: 20120316
  Receipt Date: 20120307
  Transmission Date: 20120608
  Serious: Yes (Other)
  Sender: FDA-Public Use
  Company Number: US-BAYER-2012-023587

PATIENT
  Age: 30 Year
  Sex: Female
  Weight: 106.58 kg

DRUGS (6)
  1. LEVOTHYROXINE SODIUM [Concomitant]
     Dosage: 175 MCG/24HR, QD
  2. LOVENOX [Concomitant]
     Indication: DEEP VEIN THROMBOSIS
     Dosage: UNK
     Dates: start: 20090319
  3. COUMADIN [Concomitant]
     Indication: DEEP VEIN THROMBOSIS
     Dosage: UNK
     Dates: start: 20090319
  4. YAZ [Suspect]
     Indication: MENSTRUATION IRREGULAR
     Dosage: UNK
     Dates: end: 20090301
  5. MAXAIR [Concomitant]
     Dosage: 200 MCG EVERY 4 TO 6 HOURS AS NEEDED
     Route: 055
  6. YAZ [Suspect]
     Indication: UTERINE HAEMORRHAGE

REACTIONS (2)
  - DEEP VEIN THROMBOSIS [None]
  - CHOLECYSTITIS [None]
